FAERS Safety Report 21073264 (Version 2)
Quarter: 2022Q3

REPORT INFORMATION
  Report Type: Spontaneous
  Country: MY (occurrence: MY)
  Receive Date: 20220712
  Receipt Date: 20220824
  Transmission Date: 20221027
  Serious: Yes (Life-Threatening)
  Sender: FDA-Public Use
  Company Number: MY-AMERICAN REGENT INC-2022001950

PATIENT
  Age: 5 Decade
  Sex: Female

DRUGS (1)
  1. FERINJECT [Suspect]
     Active Substance: FERRIC CARBOXYMALTOSE
     Indication: Iron deficiency
     Dosage: 1000 MILLIGRAM (20ML DILUTED IN 200ML 0.9 PERCENT M/V SODIUM CHLORIDE)
     Dates: start: 20220625, end: 20220625

REACTIONS (1)
  - Cellulitis [Recovering/Resolving]

NARRATIVE: CASE EVENT DATE: 20220626
